FAERS Safety Report 12139506 (Version 1)
Quarter: 2016Q1

REPORT INFORMATION
  Report Type: Other
  Country: PL (occurrence: PL)
  Receive Date: 20160303
  Receipt Date: 20160303
  Transmission Date: 20160526
  Serious: No
  Sender: FDA-Public Use
  Company Number: PL-LUPIN PHARMACEUTICALS INC.-2015-04089

PATIENT
  Age: 52 Year
  Sex: Female

DRUGS (2)
  1. TAZAROTEN [Concomitant]
     Indication: ACTINIC KERATOSIS
     Dosage: ONCE A DAY, IN THE EVENING ON EVEN DATES
     Route: 061
  2. DICLOFENAC [Suspect]
     Active Substance: DICLOFENAC
     Indication: ACTINIC KERATOSIS
     Dosage: 2 TIMES DAILY (FOR RIGHT SIDE) AND 2 TIMES PER DAY ON UNEVEN DATES AND DICLOFENAC ONCE A DAY, IN THE
     Route: 061

REACTIONS (3)
  - Erythema [Recovered/Resolved]
  - Pruritus [Recovered/Resolved]
  - Dry skin [Recovered/Resolved]
